FAERS Safety Report 8695882 (Version 2)
Quarter: 2013Q4

REPORT INFORMATION
  Report Type: Spontaneous
  Country: US (occurrence: US)
  Receive Date: 20120801
  Receipt Date: 20131107
  Transmission Date: 20140711
  Serious: Yes (Hospitalization, Other)
  Sender: FDA-Public Use
  Company Number: US-009507513-1207USA009808

PATIENT
  Age: 54 Year
  Sex: Female

DRUGS (1)
  1. ZOCOR [Suspect]
     Dosage: 40 MG, QD
     Route: 048

REACTIONS (4)
  - Abdominal distension [Unknown]
  - Hot flush [Unknown]
  - Abdominal pain upper [Unknown]
  - Diarrhoea [Unknown]
